FAERS Safety Report 8108985 (Version 4)
Quarter: 2014Q2

REPORT INFORMATION
  Report Type: Spontaneous
  Country: US (occurrence: US)
  Receive Date: 20110826
  Receipt Date: 20140603
  Transmission Date: 20141212
  Serious: Yes (Hospitalization)
  Sender: FDA-Public Use
  Company Number: US-GLAXOSMITHKLINE-A0890943A

PATIENT
  Age: 60 Year
  Sex: Male
  Weight: 110.9 kg

DRUGS (7)
  1. AVANDIA [Suspect]
     Indication: DIABETES MELLITUS
     Dosage: 8MG PER DAY
     Route: 048
     Dates: start: 20010109, end: 200804
  2. ZOCOR [Concomitant]
  3. TRICOR [Concomitant]
  4. COZAAR [Concomitant]
  5. INSULIN [Concomitant]
  6. NEXIUM [Concomitant]
  7. LEVOTHYROXINE [Concomitant]

REACTIONS (2)
  - Cerebrovascular accident [Not Recovered/Not Resolved]
  - Myocardial ischaemia [Unknown]
